FAERS Safety Report 5989211-1 (Version None)
Quarter: 2008Q4

REPORT INFORMATION
  Report Type: 
  Country: None (occurrence: None)
  Receive Date: 20081210
  Receipt Date: 20081202
  Transmission Date: 20090506
  Serious: Yes (Hospitalization)
  Sender: FDA-Public Use
  Company Number: US-BIOGENIDEC-2008BI013654

PATIENT
  Age: 51 Year
  Sex: Male
  Weight: 83 kg

DRUGS (1)
  1. TYSABRI [Suspect]
     Indication: MULTIPLE SCLEROSIS
     Route: 042
     Dates: start: 20080101, end: 20080513

REACTIONS (18)
  - BACK PAIN [None]
  - BURSITIS [None]
  - CONFUSIONAL STATE [None]
  - DECUBITUS ULCER [None]
  - GAIT DISTURBANCE [None]
  - HALLUCINATION [None]
  - LETHARGY [None]
  - MALAISE [None]
  - MULTIPLE SCLEROSIS [None]
  - MULTIPLE SCLEROSIS RELAPSE [None]
  - MUSCULOSKELETAL PAIN [None]
  - NEUROGENIC BLADDER [None]
  - ROTATOR CUFF SYNDROME [None]
  - SECONDARY ADRENOCORTICAL INSUFFICIENCY [None]
  - SPEECH DISORDER [None]
  - URINARY TRACT INFECTION STAPHYLOCOCCAL [None]
  - VITAMIN D DEFICIENCY [None]
  - WOUND [None]
